FAERS Safety Report 7755707-5 (Version None)
Quarter: 2011Q3

REPORT INFORMATION
  Report Type: 
  Country: None (occurrence: None)
  Receive Date: 20110916
  Receipt Date: 20110906
  Transmission Date: 20111222
  Serious: Yes (Hospitalization, Other)
  Sender: FDA-Public Use
  Company Number: PHFR2011GB05220

PATIENT
  Sex: Male

DRUGS (3)
  1. CLOZAPINE [Suspect]
     Dosage: 400 MG/DAY
     Dates: end: 20110906
  2. CLOZAPINE [Suspect]
     Indication: SCHIZOPHRENIA
     Dosage: 250 MG/DAY
     Route: 048
     Dates: start: 20060726
  3. CLOZAPINE [Suspect]
     Dosage: 100 MG AM + 400 MG AT NIGHT

REACTIONS (4)
  - CONVULSION [None]
  - INJURY [None]
  - SCHIZOPHRENIA [None]
  - LOSS OF CONSCIOUSNESS [None]
